FAERS Safety Report 9405499 (Version 1)
Quarter: 2013Q3

REPORT INFORMATION
  Report Type: Spontaneous
  Country: BR (occurrence: BR)
  Receive Date: 20130717
  Receipt Date: 20130717
  Transmission Date: 20140515
  Serious: No
  Sender: FDA-Public Use
  Company Number: BR-009507513-1307BRA006523

PATIENT
  Sex: 0

DRUGS (1)
  1. SAPHRIS [Suspect]
     Dosage: UNK, UNKNOWN
     Route: 060

REACTIONS (1)
  - Oedema peripheral [Unknown]
